FAERS Safety Report 8816186 (Version 3)
Quarter: 2013Q4

REPORT INFORMATION
  Report Type: Spontaneous
  Country: JP (occurrence: JP)
  Receive Date: 20120929
  Receipt Date: 20131125
  Transmission Date: 20140711
  Serious: Yes (Disabling, Other)
  Sender: FDA-Public Use
  Company Number: JP-009507513-1007USA02175

PATIENT
  Age: 45 Year
  Sex: Female
  Weight: 72 kg

DRUGS (9)
  1. BETAMETHASONE SODIUM PHOSPHATE [Suspect]
     Dosage: 2 MG/VIAL
     Dates: start: 200508, end: 200812
  2. PREDONINE [Suspect]
     Dosage: UNK
     Dates: start: 200310, end: 200311
  3. PREDONINE [Suspect]
     Dosage: UNK
     Route: 048
     Dates: start: 20040106, end: 20050303
  4. HYDROCORTONE [Suspect]
     Indication: ASTHMA
     Dosage: 100 MG, ONCE
     Route: 041
     Dates: start: 20061202, end: 20070109
  5. CELESTAMINE COMBINATION [Suspect]
     Route: 048
  6. SAXIZON [Suspect]
     Indication: ASTHMA
     Dosage: 200 MG, QD
     Route: 041
     Dates: start: 20060223, end: 20061201
  7. SOLU-MEDROL [Suspect]
     Indication: ASTHMA
     Dosage: 40 MG, QD
     Route: 041
     Dates: start: 20050204, end: 20050215
  8. BETAMETHASONE [Suspect]
     Dosage: UNK
     Dates: start: 200502, end: 200904
  9. BETAMETHASONE SODIUM PHOSPHATE [Suspect]
     Dosage: 4 MG/VIAL
     Dates: start: 200502, end: 200704

REACTIONS (4)
  - Osteonecrosis [Recovered/Resolved with Sequelae]
  - Osteoporosis [Recovered/Resolved with Sequelae]
  - Spinal compression fracture [Recovered/Resolved with Sequelae]
  - Cataract [Unknown]
